FAERS Safety Report 16729087 (Version 1)
Quarter: 2019Q3

REPORT INFORMATION
  Report Type: Spontaneous
  Country: US (occurrence: US)
  Receive Date: 20190822
  Receipt Date: 20190822
  Transmission Date: 20191005
  Serious: Yes (Other)
  Sender: FDA-Public Use
  Company Number: US-ASTELLAS-2019US032604

PATIENT
  Age: 7 Decade
  Sex: Male

DRUGS (4)
  1. LEXISCAN [Suspect]
     Active Substance: REGADENOSON
     Indication: PRODUCT USED FOR UNKNOWN INDICATION
     Dosage: 5 ML (0.4 MG REGADENOSON), UNKNOWN FREQ.
     Route: 042
     Dates: start: 201908, end: 201908
  2. LEXISCAN [Suspect]
     Active Substance: REGADENOSON
     Indication: PRODUCT USED FOR UNKNOWN INDICATION
     Dosage: 5 ML (0.4 MG REGADENOSON), UNKNOWN FREQ.
     Route: 042
     Dates: start: 201908, end: 201908
  3. LEXISCAN [Suspect]
     Active Substance: REGADENOSON
     Indication: PRODUCT USED FOR UNKNOWN INDICATION
     Dosage: 5 ML (0.4 MG REGADENOSON), UNKNOWN FREQ.
     Route: 042
     Dates: start: 201908, end: 201908
  4. LEXISCAN [Suspect]
     Active Substance: REGADENOSON
     Indication: PRODUCT USED FOR UNKNOWN INDICATION
     Dosage: 5 ML (0.4 MG REGADENOSON), UNKNOWN FREQ.
     Route: 042
     Dates: start: 201908, end: 201908

REACTIONS (1)
  - Unresponsive to stimuli [Unknown]

NARRATIVE: CASE EVENT DATE: 201908
